FAERS Safety Report 23841406 (Version 2)
Quarter: 2024Q3

REPORT INFORMATION
  Report Type: Report from Study
  Country: US (occurrence: US)
  Receive Date: 20240510
  Receipt Date: 20240808
  Transmission Date: 20241017
  Serious: Yes (Hospitalization, Other)
  Sender: ABBVIE
  Company Number: US-ABBVIE-5752121

PATIENT
  Sex: Male

DRUGS (1)
  1. SKYRIZI [Suspect]
     Active Substance: RISANKIZUMAB-RZAA
     Indication: Psoriatic arthropathy
     Route: 058
     Dates: start: 20221118

REACTIONS (5)
  - Knee arthroplasty [Unknown]
  - Head injury [Unknown]
  - Full blood count decreased [Recovered/Resolved]
  - Loss of consciousness [Unknown]
  - Psoriatic arthropathy [Recovering/Resolving]
